FAERS Safety Report 11799620 (Version 3)
Quarter: 2016Q1

REPORT INFORMATION
  Report Type: Spontaneous
  Country: GB (occurrence: GB)
  Receive Date: 20151203
  Receipt Date: 20160111
  Transmission Date: 20160525
  Serious: Yes (Hospitalization, Other)
  Sender: FDA-Public Use
  Company Number: GB-009507513-1511GBR012443

PATIENT
  Age: 45 Year
  Sex: Female

DRUGS (1)
  1. KEYTRUDA [Suspect]
     Active Substance: PEMBROLIZUMAB
     Indication: MALIGNANT MELANOMA
     Dosage: HAS RECEIVED 6 CYCLES
     Route: 042

REACTIONS (3)
  - Hilar lymphadenopathy [Recovering/Resolving]
  - Malignant neoplasm progression [Unknown]
  - Lung disorder [Unknown]
